FAERS Safety Report 4715388-1 (Version None)
Quarter: 2005Q3

REPORT INFORMATION
  Report Type: 
  Country: None (occurrence: None)
  Receive Date: 20050715
  Receipt Date: 20050329
  Transmission Date: 20060218
  Serious: Yes (Death, Hospitalization)
  Sender: FDA-Public Use
  Company Number: DE-MERCK-0503DEU00224

PATIENT
  Age: 64 Year
  Sex: Male

DRUGS (6)
  1. VYTORIN [Suspect]
     Indication: HYPERCHOLESTEROLAEMIA
     Route: 048
     Dates: start: 20040429, end: 20050318
  2. ASPIRIN [Concomitant]
     Route: 048
  3. METOPROLOL SUCCINATE [Concomitant]
     Route: 048
  4. PANTOPRAZOLE SODIUM [Concomitant]
     Route: 048
  5. LEVOTHYROXINE SODIUM [Concomitant]
     Route: 065
  6. POTASSIUM BICARBONATE AND POTASSIUM CITRATE [Concomitant]
     Route: 048
     Dates: start: 20050301, end: 20050301

REACTIONS (2)
  - HEPATITIS ACUTE [None]
  - SUDDEN CARDIAC DEATH [None]
